FAERS Safety Report 8616421-7 (Version None)
Quarter: 2012Q3

REPORT INFORMATION
  Report Type: 
  Country: None (occurrence: None)
  Receive Date: 20120823
  Receipt Date: 20120814
  Transmission Date: 20120928
  Serious: Yes (Other)
  Sender: FDA-Public Use
  Company Number: CHPA2012US018249

PATIENT
  Age: 78 Year
  Sex: Male

DRUGS (2)
  1. MAALOX ANTACID WITH ANTI-GAS REGULAR [Suspect]
     Indication: ULCER
     Dosage: UNK, UNK
     Route: 048
  2. MAALOX ANTACID/ANTIGAS MAX QDTABS UNKNOW [Suspect]
     Indication: ULCER
     Dosage: UNK, EVERYDAY
     Route: 048

REACTIONS (5)
  - HAEMORRHAGE INTRACRANIAL [None]
  - CEREBROVASCULAR ACCIDENT [None]
  - LACTOSE INTOLERANCE [None]
  - INCORRECT DRUG ADMINISTRATION DURATION [None]
  - INTESTINAL OBSTRUCTION [None]
